FAERS Safety Report 22193385 (Version 1)
Quarter: 2023Q2

REPORT INFORMATION
  Report Type: Spontaneous
  Country: AR (occurrence: AR)
  Receive Date: 20230410
  Receipt Date: 20230410
  Transmission Date: 20230721
  Serious: Yes (Death)
  Sender: FDA-Public Use
  Company Number: AR-BoehringerIngelheim-2023-BI-230468

PATIENT
  Age: 45 Year
  Sex: Female

DRUGS (2)
  1. OFEV [Suspect]
     Active Substance: NINTEDANIB
     Indication: Rheumatoid arthritis-associated interstitial lung disease
     Dates: start: 2020
  2. Rituzimab [Concomitant]
     Indication: Product used for unknown indication

REACTIONS (1)
  - Dengue fever [Fatal]
